FAERS Safety Report 17837439 (Version 4)
Quarter: 2020Q3

REPORT INFORMATION
  Report Type: Spontaneous
  Country: US (occurrence: US)
  Receive Date: 20200528
  Receipt Date: 20200709
  Transmission Date: 20201103
  Serious: Yes (Hospitalization, Other)
  Sender: FDA-Public Use
  Company Number: US-PFIZER INC-2020209361

PATIENT
  Age: 52 Year
  Sex: Female

DRUGS (1)
  1. METHYLPREDNISOLONE ACETATE. [Suspect]
     Active Substance: METHYLPREDNISOLONE ACETATE
     Indication: PAIN MANAGEMENT
     Dosage: UNK
     Route: 014
     Dates: start: 2002

REACTIONS (2)
  - Product contamination microbial [Unknown]
  - Meningitis fungal [Unknown]

NARRATIVE: CASE EVENT DATE: 20021104
